FAERS Safety Report 8370201-9 (Version None)
Quarter: 2012Q2

REPORT INFORMATION
  Report Type: 
  Country: None (occurrence: None)
  Receive Date: 20120518
  Receipt Date: 20120507
  Transmission Date: 20120825
  Serious: No
  Sender: FDA-Public Use
  Company Number: PT-ELI_LILLY_AND_COMPANY-PT201205001977

PATIENT
  Age: 55 Year
  Sex: Male

DRUGS (5)
  1. CIALIS [Suspect]
     Dosage: 1 DF, UNKNOWN
     Route: 048
     Dates: start: 20111101
  2. ANTIHYPERTENSIVES [Concomitant]
  3. CIALIS [Suspect]
     Dosage: 5 MG, UNK
     Route: 048
  4. CIALIS [Suspect]
     Indication: ERECTILE DYSFUNCTION
     Dosage: 20 MG, PRN
     Route: 048
     Dates: start: 20111101
  5. CIALIS [Suspect]
     Dosage: 10 MG, UNK
     Route: 048

REACTIONS (3)
  - ABNORMAL SENSATION IN EYE [None]
  - VISION BLURRED [None]
  - WRONG TECHNIQUE IN DRUG USAGE PROCESS [None]
